FAERS Safety Report 8321492-1 (Version None)
Quarter: 2012Q2

REPORT INFORMATION
  Report Type: 
  Country: None (occurrence: None)
  Receive Date: 20120430
  Receipt Date: 20120430
  Transmission Date: 20120825
  Serious: Yes (Other)
  Sender: FDA-Public Use
  Company Number: None

PATIENT
  Age: 51 Year
  Sex: Female
  Weight: 65.77 kg

DRUGS (1)
  1. TERBINAFINE HCL [Suspect]
     Dosage: 1 TABLET
     Route: 048
     Dates: start: 20120322, end: 20120421

REACTIONS (2)
  - WEIGHT DECREASED [None]
  - AGEUSIA [None]
